FAERS Safety Report 4674146-7 (Version None)
Quarter: 2005Q2

REPORT INFORMATION
  Report Type: 
  Country: None (occurrence: None)
  Receive Date: 20050524
  Receipt Date: 20050516
  Transmission Date: 20051028
  Serious: Yes (Death, Hospitalization)
  Sender: FDA-Public Use
  Company Number: 2005US000584

PATIENT
  Age: 62 Year
  Sex: Male
  Weight: 86.2 kg

DRUGS (6)
  1. PROGRAF [Suspect]
     Indication: PROPHYLAXIS AGAINST TRANSPLANT REJECTION
     Dosage: 7.00 MG, BID
     Dates: start: 20030916
  2. PREDNISONE [Concomitant]
  3. RANITIDINE [Concomitant]
  4. DILTIAZEM [Concomitant]
  5. PRAVACHOL [Concomitant]
  6. FERROUS SULFATE TAB [Concomitant]

REACTIONS (10)
  - ABDOMINAL PAIN LOWER [None]
  - BACK PAIN [None]
  - CARDIAC ARREST [None]
  - GENERAL PHYSICAL HEALTH DETERIORATION [None]
  - LOSS OF CONSCIOUSNESS [None]
  - LYMPHOCYTE COUNT DECREASED [None]
  - RED BLOOD CELL SCHISTOCYTES PRESENT [None]
  - RESPIRATORY DISTRESS [None]
  - SEPTIC SHOCK [None]
  - WHITE BLOOD CELL COUNT DECREASED [None]
